FAERS Safety Report 18053998 (Version 1)
Quarter: 2020Q3

REPORT INFORMATION
  Report Type: Spontaneous
  Country: US (occurrence: US)
  Receive Date: 20200722
  Receipt Date: 20200722
  Transmission Date: 20201103
  Serious: No
  Sender: FDA-Public Use
  Company Number: US-PFIZER INC-2020277393

PATIENT
  Age: 19 Year
  Sex: Female
  Weight: 54.43 kg

DRUGS (7)
  1. VENLAFAXINE HCL [Suspect]
     Active Substance: VENLAFAXINE HYDROCHLORIDE
     Indication: ANXIETY
     Dosage: 150 MG, 1X/DAY
  2. AMITIZA [Concomitant]
     Active Substance: LUBIPROSTONE
     Indication: GASTROINTESTINAL MOTILITY DISORDER
     Dosage: 8 UG, 1X/DAY (8MCG PER CAPSULE, 1 CAPSULE A DAY)
     Route: 048
  3. VENLAFAXINE HCL [Suspect]
     Active Substance: VENLAFAXINE HYDROCHLORIDE
     Indication: DEPRESSION
     Dosage: 75 MG, 1X/DAY
     Route: 048
     Dates: start: 201901
  4. OXYBUTYNIN CHLORIDE. [Concomitant]
     Active Substance: OXYBUTYNIN CHLORIDE
     Indication: HYPERTONIC BLADDER
     Dosage: 5 MG, 1X/DAY (5MG TABLETS, 1 TABLET A DAY)
     Route: 048
  5. ALBUTEROL [SALBUTAMOL] [Concomitant]
     Active Substance: ALBUTEROL
     Indication: ASTHMA EXERCISE INDUCED
     Dosage: UNK UNK, AS NEEDED (90MCG PER PUFF, 1 TO 2 PUFFS DEPENDING ON HOW FEELING AS NEEDED)
  6. AMITIZA [Concomitant]
     Active Substance: LUBIPROSTONE
     Indication: CONSTIPATION
  7. ONDANSETRON [Concomitant]
     Active Substance: ONDANSETRON
     Indication: NAUSEA
     Dosage: 4 MG, 2X/DAY (4MG TABLETS, 2 TABLETS A DAY)
     Route: 048

REACTIONS (14)
  - Feeling drunk [Unknown]
  - Headache [Recovering/Resolving]
  - Fall [Unknown]
  - Product dose omission issue [Unknown]
  - Feeling abnormal [Unknown]
  - Fatigue [Not Recovered/Not Resolved]
  - Somnolence [Unknown]
  - Hyperaesthesia [Not Recovered/Not Resolved]
  - Dizziness [Unknown]
  - Hypoaesthesia [Not Recovered/Not Resolved]
  - Heat stroke [Unknown]
  - Muscle twitching [Not Recovered/Not Resolved]
  - Tremor [Not Recovered/Not Resolved]
  - Nausea [Unknown]

NARRATIVE: CASE EVENT DATE: 2019
